FAERS Safety Report 11327405 (Version 1)
Quarter: 2015Q3

REPORT INFORMATION
  Report Type: Spontaneous
  Country: DE (occurrence: DE)
  Receive Date: 20150731
  Receipt Date: 20150731
  Transmission Date: 20151125
  Serious: Yes (Other)
  Sender: FDA-Public Use
  Company Number: DE-UCBSA-2015018853

PATIENT
  Age: 73 Year
  Sex: Female
  Weight: 72 kg

DRUGS (2)
  1. NEUPRO [Suspect]
     Active Substance: ROTIGOTINE
     Indication: RESTLESS LEGS SYNDROME
     Dosage: 1 MG, ONCE DAILY (QD)
     Route: 062
     Dates: start: 20150603, end: 20150610
  2. SPASMEX [Concomitant]
     Active Substance: TROSPIUM CHLORIDE
     Indication: AUTOMATIC BLADDER
     Dosage: 45 MG, ONCE DAILY (QD)
     Route: 048

REACTIONS (5)
  - Headache [Recovered/Resolved with Sequelae]
  - Rhinorrhoea [Unknown]
  - Photopsia [Recovered/Resolved with Sequelae]
  - Sciatica [Recovered/Resolved with Sequelae]
  - Muscle spasms [Recovered/Resolved with Sequelae]

NARRATIVE: CASE EVENT DATE: 201506
